FAERS Safety Report 4263593-3 (Version None)
Quarter: 2004Q1

REPORT INFORMATION
  Report Type: 
  Country: None (occurrence: None)
  Receive Date: 20040105
  Receipt Date: 20031226
  Transmission Date: 20041129
  Serious: Yes (Other)
  Sender: FDA-Public Use
  Company Number: PHRM2003FR03445

PATIENT
  Sex: 0

DRUGS (3)
  1. COTAREG [Suspect]
     Route: 064
  2. LODOZ [Concomitant]
     Route: 064
  3. LEVOTHYROXINE SODIUM [Concomitant]
     Route: 064

REACTIONS (2)
  - KIDNEY MALFORMATION [None]
  - MATERNAL DRUGS AFFECTING FOETUS [None]
